FAERS Safety Report 4989769-5 (Version None)
Quarter: 2006Q2

REPORT INFORMATION
  Report Type: 
  Country: None (occurrence: None)
  Receive Date: 20060428
  Receipt Date: 20060417
  Transmission Date: 20061013
  Serious: Yes (Disabling, Other)
  Sender: FDA-Public Use
  Company Number: 2006040837

PATIENT
  Age: 60 Year
  Sex: Female

DRUGS (2)
  1. LIPITOR [Suspect]
     Indication: BLOOD CHOLESTEROL INCREASED
     Dosage: 10 MG (10 MG, 1 IN 1 D), ORAL
     Route: 048
     Dates: start: 19980101, end: 20060301
  2. LEVOTHYROXINE SODIUM [Suspect]
     Indication: HYPOTHYROIDISM
     Dosage: ORAL
     Route: 048
     Dates: start: 19960101, end: 20060301

REACTIONS (4)
  - ABASIA [None]
  - NECK PAIN [None]
  - PAIN IN EXTREMITY [None]
  - PALPITATIONS [None]
